FAERS Safety Report 12746324 (Version 6)
Quarter: 2017Q1

REPORT INFORMATION
  Report Type: Report from Study
  Country: DE (occurrence: DE)
  Receive Date: 20160915
  Receipt Date: 20170203
  Transmission Date: 20170428
  Serious: Yes (Hospitalization)
  Sender: FDA-Public Use
  Company Number: DE-SA-2016SA124901

PATIENT
  Age: 27 Year
  Sex: Male
  Weight: 61 kg

DRUGS (2)
  1. LEMTRADA [Suspect]
     Active Substance: ALEMTUZUMAB
     Indication: MULTIPLE SCLEROSIS
     Route: 041
     Dates: start: 20151012, end: 20151016
  2. ARISTO [Concomitant]
     Indication: CONTRACEPTION
     Route: 048
     Dates: start: 20090101

REACTIONS (10)
  - Cellulitis [Recovering/Resolving]
  - Arthralgia [Not Recovered/Not Resolved]
  - Basedow^s disease [Recovering/Resolving]
  - Hypothyroidism [Not Recovered/Not Resolved]
  - Palpitations [Not Recovered/Not Resolved]
  - Conjunctivitis [Not Recovered/Not Resolved]
  - Hypothyroidism [Not Recovered/Not Resolved]
  - Reiter^s syndrome [Not Recovered/Not Resolved]
  - Cystitis [Unknown]
  - Urinary tract infection [Unknown]

NARRATIVE: CASE EVENT DATE: 20160607
